FAERS Safety Report 6266936-4 (Version None)
Quarter: 2009Q3

REPORT INFORMATION
  Report Type: 
  Country: None (occurrence: None)
  Receive Date: 20090710
  Receipt Date: 20090710
  Transmission Date: 20100115
  Serious: Yes (Death)
  Sender: FDA-Public Use
  Company Number: None

PATIENT
  Sex: Female
  Weight: 69.1 kg

DRUGS (8)
  1. ERLOTINIB [Suspect]
     Indication: NON-SMALL CELL LUNG CANCER
     Dosage: 150 MG, PO, QDAY
     Route: 048
     Dates: start: 20090615, end: 20090630
  2. LBH 589B [Suspect]
     Indication: NON-SMALL CELL LUNG CANCER
     Dosage: 30 MG, PO, #DOSES
     Route: 048
     Dates: start: 20090623, end: 20090629
  3. SENNA [Concomitant]
  4. MAGIC MOUTH WASH [Concomitant]
  5. MS CONTIN [Concomitant]
  6. PREDNISONE TAB [Concomitant]
  7. PROTONIX [Concomitant]
  8. ATIVAN [Concomitant]

REACTIONS (3)
  - CONVULSION [None]
  - DISEASE PROGRESSION [None]
  - REFUSAL OF TREATMENT BY PATIENT [None]
